FAERS Safety Report 5950680-4 (Version None)
Quarter: 2008Q4

REPORT INFORMATION
  Report Type: 
  Country: None (occurrence: None)
  Receive Date: 20081112
  Receipt Date: 20081105
  Transmission Date: 20090506
  Serious: Yes (Life-Threatening, Hospitalization)
  Sender: FDA-Public Use
  Company Number: DE-WYE-G02496808

PATIENT
  Sex: Female
  Weight: 66 kg

DRUGS (13)
  1. TREVILOR RETARD [Suspect]
     Indication: DEPRESSION
     Dosage: STEPWISE DOSE INCREASE UP TO 225 MG/D
     Route: 048
     Dates: start: 20080701, end: 20080101
  2. TREVILOR RETARD [Suspect]
     Route: 048
     Dates: start: 20080101
  3. AMLODIPINE [Concomitant]
     Indication: HYPERTENSION
     Route: 048
     Dates: start: 20080701
  4. VITAMIN D3 [Concomitant]
     Indication: OSTEOPOROSIS
     Route: 048
  5. CALCIUM CARBONATE [Concomitant]
     Indication: OSTEOPOROSIS
     Route: 048
  6. DICLOFENAC SODIUM [Concomitant]
     Dosage: UNKNOWN EMBROCATION DOSE
     Route: 058
  7. ZOPICLONE [Concomitant]
     Route: 048
  8. ALENDRONIC ACID [Concomitant]
     Indication: OSTEOPOROSIS
     Route: 048
  9. ESOMEPRAZOLE MAGNESIUM [Concomitant]
     Indication: PROPHYLAXIS
     Route: 048
  10. SPASMEX [Concomitant]
     Indication: URINARY INCONTINENCE
     Route: 048
  11. IBUPROFEN TABLETS [Concomitant]
     Indication: ARTHRALGIA
     Route: 048
  12. ENALAPRIL MALEATE [Concomitant]
     Route: 048
  13. NEBIVOLOL HCL [Concomitant]
     Indication: HYPERTENSION
     Route: 048

REACTIONS (5)
  - ALVEOLITIS [None]
  - HYPERTENSIVE CRISIS [None]
  - PLEURAL EFFUSION [None]
  - PULMONARY ALVEOLAR HAEMORRHAGE [None]
  - RESPIRATORY FAILURE [None]
